FAERS Safety Report 5963086-9 (Version None)
Quarter: 2008Q4

REPORT INFORMATION
  Report Type: 
  Country: None (occurrence: None)
  Receive Date: 20081120
  Receipt Date: 20081110
  Transmission Date: 20090506
  Serious: Yes (Other)
  Sender: FDA-Public Use
  Company Number: 036937

PATIENT
  Age: 63 Year
  Sex: Female

DRUGS (7)
  1. TAMOXIFEN CITRATE [Suspect]
     Indication: BREAST CANCER
     Dates: start: 19920101
  2. GABAPENTIN [Suspect]
  3. LETROZOLE [Suspect]
     Indication: BREAST CANCER
  4. TRASTUZUMAB (TRASTUZUMAB) [Suspect]
     Indication: BREAST CANCER
  5. FULVESTRANT (FLUVESTRANT) [Suspect]
     Indication: BREAST CANCER
  6. METHIMAZOLE [Suspect]
     Indication: TOXIC NODULAR GOITRE
  7. ANASTROZOLE [Suspect]
     Indication: BREAST CANCER

REACTIONS (12)
  - ARTHRALGIA [None]
  - BLADDER MASS [None]
  - BREAST CANCER STAGE IV [None]
  - CONNECTIVE TISSUE DISORDER [None]
  - CUTANEOUS VASCULITIS [None]
  - CYSTITIS [None]
  - DRUG ERUPTION [None]
  - DRUG TOXICITY [None]
  - HEPATIC LESION [None]
  - OESTROGEN RECEPTOR ASSAY POSITIVE [None]
  - TOXIC NODULAR GOITRE [None]
  - WEIGHT DECREASED [None]
